FAERS Safety Report 16751106 (Version 2)
Quarter: 2019Q3

REPORT INFORMATION
  Report Type: Report from Study
  Country: US (occurrence: US)
  Receive Date: 20190828
  Receipt Date: 20190829
  Transmission Date: 20191005
  Serious: Yes (Other)
  Sender: FDA-Public Use
  Company Number: US-009507513-1609USA007704

PATIENT
  Age: 61 Year
  Sex: Female
  Weight: 67.8 kg

DRUGS (15)
  1. GRANISETRON HYDROCHLORIDE. [Concomitant]
     Active Substance: GRANISETRON HYDROCHLORIDE
  2. SENOKOT [Concomitant]
     Active Substance: SENNOSIDES
  3. THIOCTIC ACID [Concomitant]
     Active Substance: .ALPHA.-LIPOIC ACID
  4. LEVOTHYROXINE SODIUM. [Concomitant]
     Active Substance: LEVOTHYROXINE SODIUM
  5. PEMBROLIZUMAB. [Suspect]
     Active Substance: PEMBROLIZUMAB
     Indication: TRIPLE NEGATIVE BREAST CANCER
     Dosage: 200 MG ON DAY 1 OF 21 DAY CYCLE
     Route: 042
     Dates: start: 20160621, end: 20160823
  6. MILK OF MAGNESIA [Concomitant]
     Active Substance: MAGNESIUM HYDROXIDE
  7. CYANOCOBALAMIN. [Concomitant]
     Active Substance: CYANOCOBALAMIN
  8. LISINOPRIL. [Concomitant]
     Active Substance: LISINOPRIL
     Route: 048
  9. CHOLECALCIFEROL [Concomitant]
     Active Substance: CHOLECALCIFEROL
  10. ERIBULIN MESYLATE [Suspect]
     Active Substance: ERIBULIN MESYLATE
     Dosage: 1.1 MG/M2 (2.0 MG; VOLUME OF INFUSION: 4 ML) ON DAY 1 AND DAY 8 OF EACH 21 DAY CYCLE
     Route: 042
     Dates: start: 20161220, end: 20161220
  11. CLARITIN [Concomitant]
     Active Substance: LORATADINE
  12. TRAMADOL HYDROCHLORIDE. [Concomitant]
     Active Substance: TRAMADOL HYDROCHLORIDE
  13. ERIBULIN MESYLATE [Suspect]
     Active Substance: ERIBULIN MESYLATE
     Indication: TRIPLE NEGATIVE BREAST CANCER
     Dosage: 1.4 MG/M2 (2.6 MG) ON DAY 1 AND DAY 8 OF EACH 21 DAY CYCLE
     Route: 042
     Dates: start: 20160621, end: 2016
  14. CALCIUM POLYCARBOPHIL. [Concomitant]
     Active Substance: CALCIUM POLYCARBOPHIL
  15. PROCHLORPERAZINE MALEATE. [Concomitant]
     Active Substance: PROCHLORPERAZINE MALEATE

REACTIONS (3)
  - Aspartate aminotransferase increased [Recovered/Resolved]
  - Alanine aminotransferase increased [Recovered/Resolved]
  - Rash maculo-papular [Recovered/Resolved]

NARRATIVE: CASE EVENT DATE: 20160908
